FAERS Safety Report 4844360-6 (Version None)
Quarter: 2005Q4

REPORT INFORMATION
  Report Type: 
  Country: None (occurrence: None)
  Receive Date: 20051202
  Receipt Date: 20050718
  Transmission Date: 20060501
  Serious: Yes (Hospitalization)
  Sender: FDA-Public Use
  Company Number: US-MERCK-0507USA02336

PATIENT
  Sex: Male
  Weight: 84 kg

DRUGS (6)
  1. LIPITOR [Concomitant]
     Route: 065
  2. ALLOPURINOL [Concomitant]
     Route: 065
  3. PROTONIX [Concomitant]
     Route: 065
  4. VIOXX [Suspect]
     Indication: BACK PAIN
     Route: 048
     Dates: start: 20010801, end: 20041001
  5. VIOXX [Suspect]
     Route: 048
     Dates: start: 20010801, end: 20041001
  6. PAXIL [Concomitant]
     Route: 065

REACTIONS (2)
  - INTERVERTEBRAL DISC INJURY [None]
  - MYOCARDIAL INFARCTION [None]
